FAERS Safety Report 23635822 (Version 7)
Quarter: 2024Q3

REPORT INFORMATION
  Report Type: Spontaneous
  Country: GB (occurrence: GB)
  Receive Date: 20240315
  Receipt Date: 20240803
  Transmission Date: 20241017
  Serious: Yes (Other)
  Sender: BAXTER
  Company Number: GB-BAXTER-2024BAX014709

PATIENT
  Sex: Male

DRUGS (15)
  1. SODIUM CHLORIDE [Suspect]
     Active Substance: SODIUM CHLORIDE
     Indication: Medication dilution
     Dosage: AT AN UNSPECIFIED DOSE 6 WEEKLY
     Route: 042
  2. SODIUM CHLORIDE [Suspect]
     Active Substance: SODIUM CHLORIDE
     Dosage: AT AN UNSPECIFIED DOSE 6 WEEKLY
     Route: 042
  3. SODIUM CHLORIDE [Suspect]
     Active Substance: SODIUM CHLORIDE
     Dosage: AT AN UNSPECIFIED DOSE 6 WEEKLY
     Route: 042
  4. SODIUM CHLORIDE [Suspect]
     Active Substance: SODIUM CHLORIDE
     Dosage: AT AN UNSPECIFIED DOSE 6 WEEKLY
     Route: 042
  5. SODIUM CHLORIDE [Suspect]
     Active Substance: SODIUM CHLORIDE
     Dosage: AT AN UNSPECIFIED DOSE 6 WEEKLY
     Route: 042
  6. WATER FOR INJECTION [Suspect]
     Active Substance: WATER
     Indication: Medication dilution
     Dosage: AT AN UNSPECIFIED DOSE 6 WEEKLY
     Route: 042
  7. WATER FOR INJECTION [Suspect]
     Active Substance: WATER
     Dosage: AT AN UNSPECIFIED DOSE 6 WEEKLY
     Route: 042
  8. WATER FOR INJECTION [Suspect]
     Active Substance: WATER
     Dosage: AT AN UNSPECIFIED DOSE 6 WEEKLY
     Route: 042
  9. WATER FOR INJECTION [Suspect]
     Active Substance: WATER
     Dosage: AT AN UNSPECIFIED DOSE 6 WEEKLY
     Route: 042
  10. WATER FOR INJECTION [Suspect]
     Active Substance: WATER
     Dosage: AT AN UNSPECIFIED DOSE 6 WEEKLY
     Route: 042
  11. INFLIXIMAB [Suspect]
     Active Substance: INFLIXIMAB
     Indication: Crohn^s disease
     Dosage: (REMSIMA 1 MG BAXTER) 330 MG 6 WEEKLY, STRENGTH: 1 MG
     Route: 042
  12. INFLIXIMAB [Suspect]
     Active Substance: INFLIXIMAB
     Dosage: (REMSIMA 1 MG BAXTER) 330 MG 6 WEEKLY, STRENGTH: 1 MG
     Route: 042
  13. INFLIXIMAB [Suspect]
     Active Substance: INFLIXIMAB
     Dosage: (REMSIMA 1 MG BAXTER) 330 MG 6 WEEKLY, STRENGTH: 5 MG/KG
     Route: 042
  14. INFLIXIMAB [Suspect]
     Active Substance: INFLIXIMAB
     Dosage: (REMSIMA 1 MG BAXTER) 330 UNIT NOT REPORTED 6 WEEKLY
     Route: 042
  15. INFLIXIMAB [Suspect]
     Active Substance: INFLIXIMAB
     Dosage: (REMSIMA 1 MG BAXTER) 330 MG 6 WEEKLY
     Route: 042

REACTIONS (18)
  - Fistula [Not Recovered/Not Resolved]
  - Pain [Recovered/Resolved]
  - Infected fistula [Recovered/Resolved]
  - Crohn^s disease [Recovered/Resolved]
  - Haemorrhoidal haemorrhage [Unknown]
  - Haematochezia [Unknown]
  - Treatment delayed [Recovered/Resolved]
  - Intentional dose omission [Recovered/Resolved]
  - Procedural site reaction [Recovered/Resolved]
  - Faeces soft [Unknown]
  - Dyschezia [Unknown]
  - Anal fistula [Unknown]
  - Fistula discharge [Unknown]
  - Mass [Unknown]
  - Product dose omission issue [Recovered/Resolved]
  - Faeces hard [Unknown]
  - Proctalgia [Unknown]
  - Suture related complication [Unknown]
